FAERS Safety Report 4817580-4 (Version None)
Quarter: 2005Q4

REPORT INFORMATION
  Report Type: 
  Country: None (occurrence: None)
  Receive Date: 20051031
  Receipt Date: 20051020
  Transmission Date: 20060501
  Serious: Yes (Hospitalization, Other)
  Sender: FDA-Public Use
  Company Number: 2005-06-1009

PATIENT
  Age: 63 Year
  Sex: Female
  Weight: 58 kg

DRUGS (4)
  1. TEMODAL [Suspect]
     Indication: GLIOBLASTOMA
     Dosage: 120 MG QD ORAL
     Route: 048
     Dates: start: 20050509, end: 20050527
  2. DAFALGAN [Suspect]
     Dosage: 1-2 G QD*
     Dates: start: 20050601
  3. DAFALGAN [Suspect]
  4. RADIATION THERAPY [Concomitant]

REACTIONS (6)
  - BILIARY COLIC [None]
  - CHOLESTASIS [None]
  - CYTOLYTIC HEPATITIS [None]
  - GASTROINTESTINAL DISORDER [None]
  - INFECTION [None]
  - THROMBOCYTOPENIA [None]
